FAERS Safety Report 7388281-6 (Version None)
Quarter: 2011Q2

REPORT INFORMATION
  Report Type: 
  Country: None (occurrence: None)
  Receive Date: 20110401
  Receipt Date: 20101026
  Transmission Date: 20111010
  Serious: Yes (Hospitalization)
  Sender: FDA-Public Use
  Company Number: US-BAYER-201024710NA

PATIENT
  Sex: Female
  Weight: 68.027 kg

DRUGS (7)
  1. YASMIN [Suspect]
     Indication: PRODUCT USED FOR UNKNOWN INDICATION
     Dosage: UNK
     Route: 048
     Dates: start: 20060227, end: 20060501
  2. CEFDINIR [Concomitant]
     Dosage: UNK
     Dates: start: 20080101
  3. CEPHALEXIN [Concomitant]
     Dosage: UNK
     Dates: start: 20060101
  4. ACETAMINOPHEN W/ CODEINE [Concomitant]
     Dosage: UNK
     Dates: start: 20060101
  5. HYDROCODONE [HYDROCODONE] [Concomitant]
     Dosage: UNK
     Dates: start: 20060101
  6. PROMETHAZINE [Concomitant]
     Dosage: UNK
     Dates: start: 20060101
  7. NAPROXEN [Concomitant]

REACTIONS (2)
  - DEEP VEIN THROMBOSIS [None]
  - PULMONARY EMBOLISM [None]
